FAERS Safety Report 13148653 (Version 4)
Quarter: 2017Q4

REPORT INFORMATION
  Report Type: Spontaneous
  Country: US (occurrence: US)
  Receive Date: 20170125
  Receipt Date: 20171024
  Transmission Date: 20180320
  Serious: Yes (Other)
  Sender: FDA-Public Use
  Company Number: US-PFIZER INC-2017032113

PATIENT
  Sex: Female

DRUGS (1)
  1. LYRICA [Suspect]
     Active Substance: PREGABALIN
     Indication: SLEEP DISORDER
     Dosage: 50 MG, 1X/DAY(AT NIGHT )

REACTIONS (4)
  - Feeling abnormal [Unknown]
  - Product use in unapproved indication [Unknown]
  - Mental impairment [Unknown]
  - Vision blurred [Unknown]
